FAERS Safety Report 17319522 (Version 1)
Quarter: 2020Q1

REPORT INFORMATION
  Report Type: Spontaneous
  Country: US (occurrence: US)
  Receive Date: 20200125
  Receipt Date: 20200125
  Transmission Date: 20200409
  Serious: No
  Sender: FDA-Public Use
  Company Number: US-JNJFOC-20200128927

PATIENT
  Sex: Female
  Weight: 60.38 kg

DRUGS (1)
  1. MENS ROGAINE EXTRA STRENGTH [Suspect]
     Active Substance: MINOXIDIL
     Indication: ALOPECIA
     Dosage: HALF CAPFUL
     Route: 061
     Dates: start: 2019

REACTIONS (3)
  - Product use issue [Unknown]
  - Off label use [Unknown]
  - Product formulation issue [Unknown]

NARRATIVE: CASE EVENT DATE: 2019
